FAERS Safety Report 7412358-X (Version None)
Quarter: 2011Q2

REPORT INFORMATION
  Report Type: 
  Country: None (occurrence: None)
  Receive Date: 20110408
  Receipt Date: 20110408
  Transmission Date: 20111010
  Serious: Yes (Other)
  Sender: FDA-Public Use
  Company Number: None

PATIENT
  Age: 23 Year
  Sex: Female
  Weight: 68.0396 kg

DRUGS (14)
  1. GABAPENTIN [Concomitant]
  2. ADERALL XR [Concomitant]
  3. ZYPREXA [Concomitant]
  4. CLONAZEPAM [Concomitant]
  5. ZYRTEC [Concomitant]
  6. WELLBUTRIN SR [Concomitant]
  7. SEROQUEL XR [Concomitant]
  8. LITHIUM CARBONATE [Concomitant]
  9. CYMBALTA [Suspect]
  10. LAMACTIL [Concomitant]
  11. ATIVAN [Concomitant]
  12. RISPERIDONE [Concomitant]
  13. LEXAPRO [Concomitant]
  14. ABILIFY [Concomitant]

REACTIONS (1)
  - FIBROMYALGIA [None]
